FAERS Safety Report 9421115 (Version 1)
Quarter: 2013Q3

REPORT INFORMATION
  Report Type: Spontaneous
  Country: CA (occurrence: None)
  Receive Date: 20130724
  Receipt Date: 20130724
  Transmission Date: 20140515
  Serious: Yes (Hospitalization)
  Sender: FDA-Public Use
  Company Number: 2013AP26754

PATIENT
  Sex: 0

DRUGS (1)
  1. GABAPENTIN (GABAPENTIN) [Suspect]
     Route: 064

REACTIONS (3)
  - Maternal drugs affecting foetus [None]
  - Neonatal behavioural syndrome [None]
  - Drug withdrawal syndrome neonatal [None]
